FAERS Safety Report 16004329 (Version 3)
Quarter: 2019Q4

REPORT INFORMATION
  Report Type: Spontaneous
  Country: US (occurrence: US)
  Receive Date: 20190226
  Receipt Date: 20191017
  Transmission Date: 20200122
  Serious: Yes (Hospitalization, Other)
  Sender: FDA-Public Use
  Company Number: PHEH2019US007693

PATIENT
  Age: 6 Year
  Sex: Female
  Weight: 26.3 kg

DRUGS (24)
  1. DIFLUCAN [Concomitant]
     Active Substance: FLUCONAZOLE
     Indication: PRODUCT USED FOR UNKNOWN INDICATION
     Dosage: 140 MG, QD
     Route: 065
     Dates: start: 20190120, end: 20190122
  2. HEPARIN [Concomitant]
     Active Substance: HEPARIN SODIUM
     Indication: PRODUCT USED FOR UNKNOWN INDICATION
     Dosage: 10 UNITS/ML, PRN
     Route: 065
     Dates: start: 20190120, end: 20190120
  3. HEPARIN [Concomitant]
     Active Substance: HEPARIN SODIUM
     Dosage: 100 UNITS/ML, PRN
     Route: 065
     Dates: start: 20190120, end: 20190122
  4. ROCEPHIN [Concomitant]
     Active Substance: CEFTRIAXONE SODIUM
     Indication: PRODUCT USED FOR UNKNOWN INDICATION
     Dosage: 40 MG/ML, ONCE/SINGLE
     Route: 065
     Dates: start: 20190119, end: 20190119
  5. BENADRYL [Concomitant]
     Active Substance: DIPHENHYDRAMINE HYDROCHLORIDE
     Indication: PRODUCT USED FOR UNKNOWN INDICATION
     Dosage: 12.5 MG, Q6H PRN
     Route: 065
     Dates: start: 20190120, end: 20190122
  6. CLARITIN [Concomitant]
     Active Substance: LORATADINE
     Indication: PRODUCT USED FOR UNKNOWN INDICATION
     Dosage: 7.5 MG, QD
     Route: 065
     Dates: start: 20190120, end: 20190122
  7. KYMRIAH [Suspect]
     Active Substance: TISAGENLECLEUCEL
     Indication: ACUTE LYMPHOCYTIC LEUKAEMIA
     Dosage: 2.4 X 10E5 CELLS/KG
     Route: 042
     Dates: start: 20190114
  8. FURADANTIN [Concomitant]
     Active Substance: NITROFURANTOIN
     Dosage: 52 MG, QD
     Route: 065
     Dates: start: 20190122, end: 20190122
  9. SODIUM CHLORIDE. [Concomitant]
     Active Substance: SODIUM CHLORIDE
     Dosage: 0.9 %, ONCE/SINGLE
     Route: 042
     Dates: start: 20190120, end: 20190122
  10. NEURONTIN [Concomitant]
     Active Substance: GABAPENTIN
     Indication: PRODUCT USED FOR UNKNOWN INDICATION
     Dosage: 300 MG, TID
     Route: 065
     Dates: start: 20190120, end: 20190122
  11. HEPARIN [Concomitant]
     Active Substance: HEPARIN SODIUM
     Dosage: 50 UNITS/ML, PRN
     Route: 065
     Dates: start: 20190120, end: 20190122
  12. ZOFRAN [Concomitant]
     Active Substance: ONDANSETRON HYDROCHLORIDE
     Dosage: 2 MG/ML, Q8H (PRN)
     Route: 065
     Dates: start: 20190120, end: 20190120
  13. MAXIPIME [Concomitant]
     Active Substance: CEFEPIME HYDROCHLORIDE
     Indication: PRODUCT USED FOR UNKNOWN INDICATION
     Dosage: 1335.2 MG, Q8H
     Route: 065
     Dates: start: 20190120, end: 20190120
  14. ZYLOPRIM [Concomitant]
     Active Substance: ALLOPURINOL
     Indication: PRODUCT USED FOR UNKNOWN INDICATION
     Dosage: 88 MG, TID
     Route: 065
     Dates: start: 20190120, end: 20190122
  15. MIRALAX [Concomitant]
     Active Substance: POLYETHYLENE GLYCOL 3350
     Indication: PRODUCT USED FOR UNKNOWN INDICATION
     Dosage: 8.5 G, QD
     Route: 065
     Dates: start: 20190120, end: 20190122
  16. FURADANTIN [Concomitant]
     Active Substance: NITROFURANTOIN
     Indication: PRODUCT USED FOR UNKNOWN INDICATION
     Dosage: 52 MG, QD
     Route: 065
     Dates: start: 20190120, end: 20190120
  17. ZOFRAN [Concomitant]
     Active Substance: ONDANSETRON HYDROCHLORIDE
     Dosage: 4 MG, TID (PRN)
     Route: 065
     Dates: start: 20190120, end: 20190120
  18. SEPTRA [Concomitant]
     Active Substance: SULFAMETHOXAZOLE\TRIMETHOPRIM
     Indication: PRODUCT USED FOR UNKNOWN INDICATION
     Dosage: 68 MG, BID
     Route: 065
     Dates: start: 20190120, end: 20190122
  19. SODIUM CHLORIDE. [Concomitant]
     Active Substance: SODIUM CHLORIDE
     Indication: PRODUCT USED FOR UNKNOWN INDICATION
     Dosage: 0.9 %, ONCE/SINGLE
     Route: 040
     Dates: start: 20190121, end: 20190121
  20. CATHFLO ACTIVASE [Concomitant]
     Active Substance: ALTEPLASE
     Indication: PRODUCT USED FOR UNKNOWN INDICATION
     Dosage: 1 MG/ML, ONCE/SINGLE
     Route: 065
     Dates: start: 20190121, end: 20190121
  21. KEPPRA [Concomitant]
     Active Substance: LEVETIRACETAM
     Indication: PRODUCT USED FOR UNKNOWN INDICATION
     Dosage: 260 MG, BID
     Route: 065
     Dates: start: 20190120, end: 20190122
  22. PAROEX [Concomitant]
     Active Substance: CHLORHEXIDINE GLUCONATE
     Indication: PRODUCT USED FOR UNKNOWN INDICATION
     Dosage: 10 ML, BID
     Route: 065
     Dates: start: 20190120, end: 20190120
  23. ZOFRAN [Concomitant]
     Active Substance: ONDANSETRON HYDROCHLORIDE
     Indication: PRODUCT USED FOR UNKNOWN INDICATION
     Dosage: 4 MG, Q8H (PRN)
     Route: 065
     Dates: start: 20190120, end: 20190120
  24. LMX [Concomitant]
     Active Substance: LIDOCAINE
     Indication: PRODUCT USED FOR UNKNOWN INDICATION
     Dosage: 1 DF, PRN
     Route: 065
     Dates: start: 20190120, end: 20190122

REACTIONS (15)
  - Neutropenia [Unknown]
  - Red blood cell count decreased [Unknown]
  - Immature granulocyte count increased [Unknown]
  - Lymphocyte count decreased [Unknown]
  - Pyrexia [Unknown]
  - Cytokine release syndrome [Recovered/Resolved]
  - Nausea [Unknown]
  - Fatigue [Unknown]
  - Immunoglobulins decreased [Unknown]
  - White blood cell count decreased [Unknown]
  - Headache [Recovered/Resolved]
  - Malaise [Unknown]
  - Haematocrit decreased [Unknown]
  - Haemoglobin decreased [Unknown]
  - Platelet count decreased [Unknown]

NARRATIVE: CASE EVENT DATE: 20190114
